FAERS Safety Report 4438949-6 (Version None)
Quarter: 2004Q3

REPORT INFORMATION
  Report Type: 
  Country: None (occurrence: None)
  Receive Date: 20040830
  Receipt Date: 20040818
  Transmission Date: 20050211
  Serious: Yes (Hospitalization)
  Sender: FDA-Public Use
  Company Number: 200414080BCC

PATIENT
  Age: 78 Year
  Sex: Female
  Weight: 67.1324 kg

DRUGS (4)
  1. ASPIRIN [Suspect]
     Indication: MYOCARDIAL INFARCTION
     Dosage: 650 MG, PRN, ORAL
     Route: 048
     Dates: start: 20040801
  2. ASPIRIN [Suspect]
     Indication: PROPHYLAXIS
     Dosage: 650 MG, PRN, ORAL
     Route: 048
     Dates: start: 20040801
  3. BLOOD PRESSURE MEDICATION (NOS) [Concomitant]
  4. DIABETES MEDICATION (NOS) [Concomitant]

REACTIONS (3)
  - BLOOD PRESSURE INCREASED [None]
  - CARDIAC DISORDER [None]
  - FEELING ABNORMAL [None]
